FAERS Safety Report 21344236 (Version 2)
Quarter: 2022Q4

REPORT INFORMATION
  Report Type: Spontaneous
  Country: US (occurrence: US)
  Receive Date: 20220916
  Receipt Date: 20221012
  Transmission Date: 20230113
  Serious: No
  Sender: FDA-Public Use
  Company Number: US-BRISTOL-MYERS SQUIBB COMPANY-2022-097574

PATIENT
  Age: 65 Year
  Sex: Female
  Weight: 53.7 kg

DRUGS (1)
  1. ABECMA [Suspect]
     Active Substance: IDECABTAGENE VICLEUCEL
     Indication: Plasma cell myeloma
     Route: 065

REACTIONS (9)
  - Pyrexia [Unknown]
  - Chills [Unknown]
  - Aspartate aminotransferase increased [Unknown]
  - Fatigue [Unknown]
  - Diarrhoea [Unknown]
  - Alanine aminotransferase [Unknown]
  - Aspartate aminotransferase increased [Unknown]
  - Incontinence [Unknown]
  - Somnolence [Unknown]

NARRATIVE: CASE EVENT DATE: 20220622
